FAERS Safety Report 25807478 (Version 5)
Quarter: 2025Q4

REPORT INFORMATION
  Report Type: Report from Study
  Country: US (occurrence: US)
  Receive Date: 20250916
  Receipt Date: 20251224
  Transmission Date: 20260117
  Serious: No
  Sender: PFIZER
  Company Number: US-PFIZER INC-202500177867

PATIENT
  Age: 14 Year
  Sex: Male
  Weight: 36.281 kg

DRUGS (1)
  1. GENOTROPIN [Suspect]
     Active Substance: SOMATROPIN
     Indication: Growth disorder
     Dosage: 2.6 MG, 1X/DAY
     Dates: start: 2023

REACTIONS (2)
  - Device information output issue [Unknown]
  - Device issue [Unknown]
